FAERS Safety Report 7772799-8 (Version None)
Quarter: 2011Q3

REPORT INFORMATION
  Report Type: 
  Country: None (occurrence: None)
  Receive Date: 20110922
  Receipt Date: 20100412
  Transmission Date: 20111222
  Serious: Yes (Hospitalization)
  Sender: FDA-Public Use
  Company Number: US-ASTRAZENECA-2009UW17057

PATIENT
  Sex: Male

DRUGS (3)
  1. MIRTAZAPINE [Concomitant]
     Indication: POST-TRAUMATIC STRESS DISORDER
     Dosage: 30 MG TAKE ONE-HALF TABLET BY MOUTH AT BEDTIME FOR 14 DAYS, THEN ONE TAB AT BEDTIME FOR 7 DAYS
     Dates: start: 20040617, end: 20050618
  2. MIRTAZAPINE [Concomitant]
     Indication: DEPRESSION
     Dosage: 30 MG TAKE ONE-HALF TABLET BY MOUTH AT BEDTIME FOR 14 DAYS, THEN ONE TAB AT BEDTIME FOR 7 DAYS
     Dates: start: 20040617, end: 20050618
  3. SEROQUEL [Suspect]
     Dosage: 25 MG TO 100 MG AT BEDTIME
     Route: 048
     Dates: start: 20040412

REACTIONS (3)
  - DIABETES MELLITUS [None]
  - TYPE 2 DIABETES MELLITUS [None]
  - HYPERGLYCAEMIC HYPEROSMOLAR NONKETOTIC SYNDROME [None]
